FAERS Safety Report 8981810 (Version 1)
Quarter: 2012Q4

REPORT INFORMATION
  Report Type: 
  Country: HK (occurrence: HK)
  Receive Date: 20121223
  Receipt Date: 20121223
  Transmission Date: 20130627
  Serious: Yes (Other)
  Sender: FDA-Public Use
  Company Number: PHHY2012HK117199

PATIENT
  Age: 61 Year
  Sex: Male

DRUGS (3)
  1. CICLOSPORIN [Suspect]
     Indication: RENAL TRANSPLANT
  2. PREDNISOLONE SANDOZ [Suspect]
     Indication: RENAL TRANSPLANT
  3. MYCOPHENOLATE MOFETIL [Suspect]
     Indication: RENAL TRANSPLANT

REACTIONS (7)
  - Diabetes mellitus [Unknown]
  - Zygomycosis [Unknown]
  - Pulmonary malformation [Unknown]
  - Pyrexia [Unknown]
  - Dyspnoea [Unknown]
  - Leukocytosis [Unknown]
  - Pharyngeal lesion [Unknown]
